FAERS Safety Report 5909751-0 (Version None)
Quarter: 2008Q4

REPORT INFORMATION
  Report Type: 
  Country: None (occurrence: None)
  Receive Date: 20081003
  Receipt Date: 20081003
  Transmission Date: 20090506
  Serious: Yes (Hospitalization)
  Sender: FDA-Public Use
  Company Number: None

PATIENT
  Sex: Male

DRUGS (8)
  1. GMCSF [Suspect]
     Indication: PROSTATE CANCER
     Dosage: 250UG/M2 QD X 14 DAYS SQ  X 14 DAYS OFF
     Route: 058
     Dates: start: 20080811
  2. LUPRON [Concomitant]
  3. NEXIUM [Concomitant]
  4. MULTI-VITAMINS [Concomitant]
  5. ALLOPURINOL [Concomitant]
  6. CALCIUM SUPPLEMENTS [Concomitant]
  7. FLOMAX [Concomitant]
  8. LOVENOX [Concomitant]

REACTIONS (1)
  - DEEP VEIN THROMBOSIS [None]
